FAERS Safety Report 12451494 (Version 2)
Quarter: 2016Q3

REPORT INFORMATION
  Report Type: Spontaneous
  Country: US (occurrence: US)
  Receive Date: 20160609
  Receipt Date: 20160725
  Transmission Date: 20161109
  Serious: Yes (Hospitalization, Disabling, Other)
  Sender: FDA-Public Use
  Company Number: US-009507513-1201USA00800

PATIENT
  Sex: Female
  Weight: 72.56 kg

DRUGS (4)
  1. FOSAMAX [Suspect]
     Active Substance: ALENDRONATE SODIUM
     Indication: OSTEOPOROSIS
     Dosage: 70 MG, UNK
     Route: 048
     Dates: start: 20010529, end: 20040415
  2. OMEPRAZOLE. [Concomitant]
     Active Substance: OMEPRAZOLE
     Indication: PRODUCT USED FOR UNKNOWN INDICATION
     Dosage: UNK
     Route: 048
     Dates: start: 20021218
  3. ACTONEL [Suspect]
     Active Substance: RISEDRONATE SODIUM
     Indication: OSTEOPOROSIS
     Dosage: 35 MG, UNK
     Route: 048
     Dates: start: 20040514, end: 20061109
  4. BONIVA [Suspect]
     Active Substance: IBANDRONATE SODIUM
     Indication: OSTEOPOROSIS
     Dosage: 150 MG, UNK
     Route: 048
     Dates: start: 20070115, end: 201001

REACTIONS (25)
  - Gastrooesophageal reflux disease [Unknown]
  - Anxiety [Unknown]
  - Fall [Unknown]
  - Depression [Unknown]
  - Psoriatic arthropathy [Unknown]
  - Memory impairment [Unknown]
  - Limb injury [Unknown]
  - Tendonitis [Unknown]
  - Vitamin D deficiency [Unknown]
  - Systemic lupus erythematosus [Unknown]
  - Hypothyroidism [Unknown]
  - Drug hypersensitivity [Unknown]
  - Vitreous detachment [Unknown]
  - Femur fracture [Recovered/Resolved]
  - Osteoarthritis [Unknown]
  - Essential hypertension [Unknown]
  - Mixed connective tissue disease [Unknown]
  - Pain in extremity [Unknown]
  - Spinal column stenosis [Unknown]
  - Eye infection [Unknown]
  - Restless legs syndrome [Unknown]
  - Pain in extremity [Unknown]
  - Foot fracture [Unknown]
  - Rheumatoid arthritis [Unknown]
  - Abdominal hernia [Unknown]

NARRATIVE: CASE EVENT DATE: 2002
